FAERS Safety Report 4591018-7 (Version None)
Quarter: 2005Q1

REPORT INFORMATION
  Report Type: 
  Country: None (occurrence: None)
  Receive Date: 20050222
  Receipt Date: 20050222
  Transmission Date: 20050727
  Serious: Yes (Other)
  Sender: FDA-Public Use
  Company Number: None

PATIENT
  Age: 5 Year
  Sex: Male
  Weight: 22.6799 kg

DRUGS (1)
  1. ADDERALL XR 10 [Suspect]
     Indication: ATTENTION DEFICIT/HYPERACTIVITY DISORDER
     Dosage: 1 CAPSULE  1 DAILY  ORAL
     Route: 048

REACTIONS (3)
  - CHEST PAIN [None]
  - HEART RATE INCREASED [None]
  - PALPITATIONS [None]
